FAERS Safety Report 8721223 (Version 2)
Quarter: 2013Q4

REPORT INFORMATION
  Report Type: Report from Study
  Country: JP (occurrence: JP)
  Receive Date: 20120813
  Receipt Date: 20131106
  Transmission Date: 20140711
  Serious: Yes (Hospitalization, Other)
  Sender: FDA-Public Use
  Company Number: JP-009507513-1208JPN005215

PATIENT
  Age: 56 Year
  Sex: Female
  Weight: 52 kg

DRUGS (8)
  1. PEGINTRON [Suspect]
     Indication: HEPATITIS C
     Dosage: 1.5MCG/KG/WEEK
     Route: 058
     Dates: start: 20120216
  2. REBETOL [Suspect]
     Indication: HEPATITIS C
     Route: 048
     Dates: start: 20120216
  3. REBETOL [Suspect]
     Indication: HEPATITIS C
     Route: 048
     Dates: start: 20120405
  4. REBETOL [Suspect]
     Route: 048
     Dates: start: 20120413
  5. TELAVIC [Suspect]
     Indication: HEPATITIS C
     Route: 048
     Dates: start: 20120216
  6. TELAVIC [Suspect]
     Route: 048
     Dates: start: 20120426
  7. TELAVIC [Suspect]
     Route: 048
     Dates: start: 20120501
  8. CERONEED [Concomitant]
     Route: 042
     Dates: start: 20120412, end: 20120426

REACTIONS (2)
  - Anaemia [Recovering/Resolving]
  - Urinary tract infection [Recovered/Resolved]
